FAERS Safety Report 17471720 (Version 1)
Quarter: 2020Q1

REPORT INFORMATION
  Report Type: Spontaneous
  Country: FI (occurrence: FI)
  Receive Date: 20200228
  Receipt Date: 20200228
  Transmission Date: 20200409
  Serious: Yes (Hospitalization)
  Sender: FDA-Public Use
  Company Number: FI-ASTRAZENECA-2020SE27496

PATIENT
  Sex: Male

DRUGS (3)
  1. PANADOL [Concomitant]
     Active Substance: ACETAMINOPHEN
     Indication: POSTOPERATIVE ANALGESIA
  2. IRESSA [Suspect]
     Active Substance: GEFITINIB
     Indication: LUNG NEOPLASM MALIGNANT
     Dosage: 250.0MG UNKNOWN
     Route: 048
     Dates: start: 20180904
  3. BURANA [Concomitant]
     Active Substance: IBUPROFEN
     Indication: POSTOPERATIVE ANALGESIA

REACTIONS (10)
  - Abdominal pain upper [Not Recovered/Not Resolved]
  - Colitis [Unknown]
  - Diarrhoea [Unknown]
  - Dyschezia [Unknown]
  - Postoperative adhesion [Unknown]
  - Abdominal pain lower [Not Recovered/Not Resolved]
  - Inguinal hernia [Unknown]
  - Product storage error [Unknown]
  - Constipation [Unknown]
  - Testicular disorder [Unknown]
